FAERS Safety Report 4755019-8 (Version None)
Quarter: 2005Q3

REPORT INFORMATION
  Report Type: 
  Country: None (occurrence: None)
  Receive Date: 20050825
  Receipt Date: 20050816
  Transmission Date: 20060218
  Serious: Yes (Hospitalization)
  Sender: FDA-Public Use
  Company Number: 2005105634

PATIENT
  Age: 60 Year
  Sex: Male
  Weight: 116 kg

DRUGS (10)
  1. NEURONTIN [Suspect]
     Indication: ILL-DEFINED DISORDER
     Dosage: 2400 MG (2400 MG, 1 IN 1 D), ORAL
     Route: 048
  2. AMITRIPTYLINE HYDROCHLORIDE [Suspect]
     Indication: ILL-DEFINED DISORDER
     Dosage: 25 MG (25 MG, 1 IN 1 D), ORAL
     Route: 048
     Dates: end: 20050526
  3. PROGRAF [Suspect]
     Indication: ILL-DEFINED DISORDER
     Dosage: 0.5 MG (0.5 MG, 1 IN 1 D), ORAL
     Route: 048
  4. ALLOPURINOL [Suspect]
     Indication: ILL-DEFINED DISORDER
     Dosage: 300 MG (300 MCG, 1 IN 1 D), ORAL
     Route: 048
  5. RAPAMUNE [Suspect]
     Indication: ILL-DEFINED DISORDER
     Dosage: 2 MG (2 MG, 1 IN 1 D), ORAL
     Route: 048
     Dates: start: 20050509
  6. CELLCEPT [Suspect]
     Indication: ILL-DEFINED DISORDER
     Dosage: 1500 MG (500 MG, 3 IN 1 D), ORAL
     Route: 048
     Dates: start: 20020101
  7. RIVOTRIL (CLONAZEPAM) [Concomitant]
  8. OROCAL (CALCIUM CARBONATE) [Concomitant]
  9. FUROSEMIDE [Concomitant]
  10. LEVOTHYROXINE SODIUM [Concomitant]

REACTIONS (12)
  - BLOOD TRIGLYCERIDES INCREASED [None]
  - CIRCULATING ANTICOAGULANT POSITIVE [None]
  - DEEP VEIN THROMBOSIS [None]
  - DISEASE RECURRENCE [None]
  - EPISTAXIS [None]
  - HEPATIC STEATOSIS [None]
  - HYPOALBUMINAEMIA [None]
  - NEUROPATHY PERIPHERAL [None]
  - PAIN IN EXTREMITY [None]
  - PANCREATIC DISORDER [None]
  - PERICARDIAL EFFUSION [None]
  - PULMONARY EMBOLISM [None]
